FAERS Safety Report 9257522 (Version 1)
Quarter: 2013Q2

REPORT INFORMATION
  Report Type: Spontaneous
  Country: BR (occurrence: BR)
  Receive Date: 20130426
  Receipt Date: 20130426
  Transmission Date: 20140414
  Serious: Yes (Other)
  Sender: FDA-Public Use
  Company Number: BR-BAYER-2012-133145

PATIENT
  Age: 45 Year
  Sex: Female
  Weight: 63 kg

DRUGS (4)
  1. YAZ (24) [Suspect]
     Indication: CONTRACEPTION
     Dosage: UNK
     Route: 048
     Dates: start: 2012, end: 201211
  2. YAZ (24) [Suspect]
     Indication: CONTRACEPTION
     Dosage: UNK
     Route: 048
     Dates: start: 20121217
  3. DORFLEX [Concomitant]
     Indication: HEADACHE
     Dosage: 1 DF, PRN
     Route: 048
  4. COLLAGEN [Concomitant]
     Dosage: 1 DF, QD
     Route: 048
     Dates: start: 2011

REACTIONS (13)
  - Nausea [Recovered/Resolved]
  - Metrorrhagia [Recovered/Resolved]
  - Weight decreased [Recovered/Resolved]
  - Vaginal haemorrhage [Recovered/Resolved]
  - Abdominal pain [Recovered/Resolved]
  - Peau d^orange [Recovered/Resolved]
  - Inappropriate schedule of drug administration [None]
  - Vision blurred [None]
  - Tachycardia [None]
  - Headache [Recovered/Resolved]
  - Endometrial hypertrophy [None]
  - Ovarian cyst [None]
  - Ovarian enlargement [None]
